FAERS Safety Report 10265558 (Version 1)
Quarter: 2014Q2

REPORT INFORMATION
  Report Type: Spontaneous
  Country: US (occurrence: US)
  Receive Date: 20140627
  Receipt Date: 20140627
  Transmission Date: 20141212
  Serious: Yes (Disabling)
  Sender: FDA-Public Use
  Company Number: US-GLAXOSMITHKLINE-A1077685A

PATIENT
  Sex: Female

DRUGS (2)
  1. BENLYSTA [Suspect]
     Indication: SYSTEMIC LUPUS ERYTHEMATOSUS
     Dosage: 10MGK UNKNOWN
     Route: 042
     Dates: start: 20140613
  2. PREDNISONE [Concomitant]

REACTIONS (2)
  - Nausea [Recovering/Resolving]
  - Vomiting [Recovering/Resolving]
